FAERS Safety Report 6200086-8 (Version None)
Quarter: 2009Q2

REPORT INFORMATION
  Report Type: 
  Country: None (occurrence: None)
  Receive Date: 20090522
  Receipt Date: 20090511
  Transmission Date: 20091009
  Serious: Yes (Hospitalization)
  Sender: FDA-Public Use
  Company Number: AU-JNJFOC-20090502175

PATIENT
  Age: 6 Year

DRUGS (2)
  1. PARACETAMOL [Suspect]
     Route: 048
  2. PARACETAMOL [Suspect]
     Indication: MALAISE
     Dosage: 200 MG/KG/DAY, FOR 11 DAYS
     Route: 048

REACTIONS (5)
  - ACUTE HEPATIC FAILURE [None]
  - COAGULOPATHY [None]
  - HEPATIC ENCEPHALOPATHY [None]
  - HYPERBILIRUBINAEMIA [None]
  - OVERDOSE [None]
